FAERS Safety Report 23301601 (Version 2)
Quarter: 2023Q4

REPORT INFORMATION
  Report Type: Report from Study
  Country: NL (occurrence: NL)
  Receive Date: 20231215
  Receipt Date: 20231231
  Transmission Date: 20240110
  Serious: Yes (Other)
  Sender: FDA-Public Use
  Company Number: NL-002147023-NVSC2023NL094214

PATIENT
  Sex: Female

DRUGS (3)
  1. OCTREOTIDE ACETATE [Suspect]
     Active Substance: OCTREOTIDE ACETATE
     Indication: Gastric bypass
     Dosage: 1 DOSAGE FORM, Q4W (1.00 X PER 4 WEEKS)
     Route: 030
  2. OCTREOTIDE ACETATE [Suspect]
     Active Substance: OCTREOTIDE ACETATE
     Dosage: 1 DOSAGE FORM, Q3W (1.00 X PER 3 WEEKS)
     Route: 030
  3. OCTREOTIDE ACETATE [Suspect]
     Active Substance: OCTREOTIDE ACETATE
     Dosage: 1 DOSAGE FORM, Q2W (1.00 X PER 2 WEEKS)
     Route: 030

REACTIONS (7)
  - Blood glucose decreased [Unknown]
  - Injection site pain [Unknown]
  - Hypoglycaemia [Recovered/Resolved]
  - Fatigue [Unknown]
  - Cold sweat [Unknown]
  - Product use in unapproved indication [Unknown]
  - Inappropriate schedule of product administration [Unknown]
